FAERS Safety Report 10046009 (Version 3)
Quarter: 2014Q2

REPORT INFORMATION
  Report Type: Spontaneous
  Country: JP (occurrence: JP)
  Receive Date: 20140330
  Receipt Date: 20140422
  Transmission Date: 20141212
  Serious: Yes (Hospitalization, Other)
  Sender: FDA-Public Use
  Company Number: JP-AMGEN-JPNSP2014021566

PATIENT
  Age: 22 Year
  Sex: Female
  Weight: 46 kg

DRUGS (10)
  1. GRAN [Suspect]
     Indication: PRECURSOR T-LYMPHOBLASTIC LYMPHOMA/LEUKAEMIA STAGE I
     Dosage: UNK
     Route: 042
  2. LEUNASE [Suspect]
     Indication: PRECURSOR T-LYMPHOBLASTIC LYMPHOMA/LEUKAEMIA STAGE I
     Dosage: 8000 IU, 3 TIMES/WK
     Route: 041
     Dates: start: 20120217, end: 20120302
  3. ADRIACIN [Suspect]
     Indication: PRECURSOR T-LYMPHOBLASTIC LYMPHOMA/LEUKAEMIA STAGE I
     Dosage: UNK
     Route: 041
  4. PREDNISOLONE [Suspect]
     Indication: PRECURSOR T-LYMPHOBLASTIC LYMPHOMA/LEUKAEMIA STAGE I
     Dosage: UNK
     Route: 065
  5. CYCLOPHOSPHAMIDE MONOHYDRATE [Suspect]
     Indication: PRECURSOR T-LYMPHOBLASTIC LYMPHOMA/LEUKAEMIA STAGE I
     Dosage: UNK
     Route: 041
  6. ITRACONAZOLE [Suspect]
     Indication: FUNGAL INFECTION
     Dosage: UNK
     Route: 065
  7. ONCOVIN [Suspect]
     Indication: PRECURSOR T-LYMPHOBLASTIC LYMPHOMA/LEUKAEMIA
     Dosage: 2 MG, 1X/WEEK
     Route: 041
     Dates: start: 20120217, end: 20120302
  8. NEUTROGIN [Suspect]
     Indication: FEBRILE NEUTROPENIA
     Dosage: 100 MUG, QD
     Route: 058
     Dates: start: 20120302, end: 20120305
  9. LEVOFLOXACIN HYDRATE [Concomitant]
     Indication: FEBRILE NEUTROPENIA
     Dosage: UNK
     Route: 065
  10. CEFEPIME HYDROCHLORIDE [Concomitant]
     Indication: FEBRILE NEUTROPENIA
     Dosage: UNK
     Route: 041

REACTIONS (5)
  - Ileus paralytic [Recovered/Resolved]
  - Posterior reversible encephalopathy syndrome [Recovered/Resolved]
  - Febrile neutropenia [Unknown]
  - Hepatic function abnormal [Unknown]
  - Hyponatraemia [Recovered/Resolved]
